FAERS Safety Report 18540283 (Version 1)
Quarter: 2020Q4

REPORT INFORMATION
  Report Type: Spontaneous
  Country: US (occurrence: US)
  Receive Date: 20201124
  Receipt Date: 20201124
  Transmission Date: 20210114
  Serious: Yes (Disabling)
  Sender: FDA-Public Use
  Company Number: None

PATIENT
  Age: 29 Year
  Sex: Female
  Weight: 103.5 kg

DRUGS (6)
  1. DAILY VITAMIN [Concomitant]
     Active Substance: VITAMINS
  2. COD LIVER OIL [Concomitant]
     Active Substance: COD LIVER OIL
  3. VITAMINS NOS [Concomitant]
     Active Substance: VITAMINS
  4. VITAMIN B COMPLEX [Concomitant]
     Active Substance: CYANOCOBALAMIN\DEXPANTHENOL\NIACINAMIDE\PYRIDOXINE HYDROCHLORIDE\RIBOFLAVIN 5^-PHOSPHATE SODIUM\THIAMINE HYDROCHLORIDE\VITAMIN B COMPLEX
  5. MINOCYCLINE [Suspect]
     Active Substance: MINOCYCLINE HYDROCHLORIDE
     Indication: ACNE
     Dosage: ?          QUANTITY:1 CAPSULE(S);?
     Route: 048
     Dates: start: 20200926, end: 20201017
  6. ELDERBERRY [Concomitant]
     Active Substance: HERBALS

REACTIONS (15)
  - Hypoacusis [None]
  - Pruritus [None]
  - Blindness [None]
  - Neck pain [None]
  - Arachnoid cyst [None]
  - Lumbar puncture abnormal [None]
  - Headache [None]
  - Sinusitis [None]
  - Cerebral atrophy [None]
  - Tinnitus [None]
  - Dizziness postural [None]
  - Visual field defect [None]
  - Brain injury [None]
  - Papilloedema [None]
  - Eye pain [None]

NARRATIVE: CASE EVENT DATE: 20201016
